FAERS Safety Report 18408680 (Version 2)
Quarter: 2021Q1

REPORT INFORMATION
  Report Type: Report from Study
  Country: CA (occurrence: CA)
  Receive Date: 20201020
  Receipt Date: 20210223
  Transmission Date: 20210419
  Serious: Yes (Other)
  Sender: FDA-Public Use
  Company Number: CA-ASTRAZENECA-2020SF33107

PATIENT
  Age: 53 Year
  Sex: Female

DRUGS (11)
  1. DOSTINEX [Concomitant]
     Active Substance: CABERGOLINE
     Indication: PRODUCT USED FOR UNKNOWN INDICATION
     Route: 048
  2. VALSARTAN. [Suspect]
     Active Substance: VALSARTAN
     Indication: BLOOD PRESSURE MEASUREMENT
     Dosage: 1 DF (80112.5MG), UNK
     Route: 065
  3. ROSUVASTATIN. [Suspect]
     Active Substance: ROSUVASTATIN
     Indication: BLOOD CHOLESTEROL INCREASED
     Route: 065
  4. PASIREOTIDE. [Suspect]
     Active Substance: PASIREOTIDE
     Indication: ACROMEGALY
     Dosage: 40.0MG UNKNOWN
     Route: 030
     Dates: start: 20181120
  5. SOMAVERT [Concomitant]
     Active Substance: PEGVISOMANT
     Indication: PRODUCT USED FOR UNKNOWN INDICATION
  6. IRON [Concomitant]
     Active Substance: IRON
     Indication: HAEMOGLOBIN DECREASED
  7. IRON [Concomitant]
     Active Substance: IRON
     Indication: BLOOD IRON DECREASED
  8. PASIREOTIDE. [Suspect]
     Active Substance: PASIREOTIDE
     Indication: ACROMEGALY
     Dosage: 40.0MG UNKNOWN
     Route: 030
  9. METFORMIN HYDROCHLORIDE. [Suspect]
     Active Substance: METFORMIN HYDROCHLORIDE
     Indication: DIABETES MELLITUS
     Route: 065
  10. SANDOSTATIN LAR DEPOT [Suspect]
     Active Substance: OCTREOTIDE ACETATE
     Indication: ACROMEGALY
     Route: 030
     Dates: start: 20190212
  11. PASIREOTIDE. [Suspect]
     Active Substance: PASIREOTIDE
     Indication: ACROMEGALY
     Dosage: 40.0MG UNKNOWN
     Route: 030

REACTIONS (15)
  - Nocturia [Unknown]
  - Sleep apnoea syndrome [Unknown]
  - Anaemia [Unknown]
  - Blood pressure increased [Not Recovered/Not Resolved]
  - Nasopharyngitis [Recovered/Resolved]
  - Inappropriate schedule of product administration [Unknown]
  - Concomitant disease aggravated [Unknown]
  - Faeces discoloured [Not Recovered/Not Resolved]
  - Oropharyngeal pain [Unknown]
  - Drug ineffective [Unknown]
  - Diabetes mellitus [Unknown]
  - Cough [Unknown]
  - Diarrhoea [Unknown]
  - Blood glucose increased [Unknown]
  - Neoplasm malignant [Not Recovered/Not Resolved]

NARRATIVE: CASE EVENT DATE: 20180802
